FAERS Safety Report 5678416-5 (Version None)
Quarter: 2008Q1

REPORT INFORMATION
  Report Type: 
  Country: None (occurrence: None)
  Receive Date: 20080320
  Receipt Date: 20080305
  Transmission Date: 20080703
  Serious: Yes (Other)
  Sender: FDA-Public Use
  Company Number: E3810-01621-SPO-FR

PATIENT
  Age: 48 Year
  Sex: Male

DRUGS (6)
  1. RABEPRAZOLE SODIUM [Suspect]
     Indication: ABDOMINAL PAIN UPPER
     Dosage: 20 MG, 1 IN 1 D, ORAL
     Route: 048
     Dates: start: 20080215, end: 20080218
  2. RHINOFLUIMUCIL (RHINOFLUIMUCIL) [Concomitant]
  3. KARDEGIC (ACETYLSALICYLATE LYSINE) [Concomitant]
  4. ZOCOR [Concomitant]
  5. SECTRAL [Concomitant]
  6. ACETAMINOPHEN [Concomitant]

REACTIONS (1)
  - HEPATITIS A [None]
